FAERS Safety Report 5197627-9 (Version None)
Quarter: 2006Q4

REPORT INFORMATION
  Report Type: 
  Country: None (occurrence: None)
  Receive Date: 20061228
  Receipt Date: 20061212
  Transmission Date: 20070319
  Serious: No
  Sender: FDA-Public Use
  Company Number: TUK2006A00091

PATIENT
  Age: 74 Year
  Sex: Male

DRUGS (5)
  1. ACTOS [Suspect]
     Indication: DIABETES MELLITUS
     Dosage: 15 MG
     Route: 048
     Dates: start: 20060727, end: 20061115
  2. ATENOLOL [Concomitant]
  3. GLIMEPIRIDE [Concomitant]
  4. METFORMIN HCL [Concomitant]
  5. SIMVASTATIN [Concomitant]

REACTIONS (2)
  - IDIOPATHIC THROMBOCYTOPENIC PURPURA [None]
  - PLATELET COUNT DECREASED [None]
